FAERS Safety Report 19073522 (Version 1)
Quarter: 2021Q1

REPORT INFORMATION
  Report Type: Spontaneous
  Country: PR (occurrence: PR)
  Receive Date: 20210330
  Receipt Date: 20210330
  Transmission Date: 20210420
  Serious: No
  Sender: FDA-Public Use
  Company Number: PR-PFIZER INC-2021248070

PATIENT
  Age: 77 Year
  Sex: Female

DRUGS (1)
  1. XELJANZ [Suspect]
     Active Substance: TOFACITINIB CITRATE
     Dosage: 5 MG, ONCE A DAY

REACTIONS (1)
  - Anxiety [Unknown]
